FAERS Safety Report 9482963 (Version 1)
Quarter: 2013Q3

REPORT INFORMATION
  Report Type: Spontaneous
  Country: CA (occurrence: CA)
  Receive Date: 20130828
  Receipt Date: 20130828
  Transmission Date: 20140515
  Serious: Yes (Hospitalization, Other)
  Sender: FDA-Public Use
  Company Number: CA-AMGEN-US064383

PATIENT
  Age: 47 Year
  Sex: Female

DRUGS (2)
  1. ENBREL [Suspect]
     Indication: RHEUMATOID ARTHRITIS
     Dosage: 25 MG, 2 TIMES/WK
     Route: 058
     Dates: start: 20011217
  2. METHOTREXATE [Concomitant]

REACTIONS (5)
  - Post procedural infection [Unknown]
  - Osteitis [Unknown]
  - Erythema [Unknown]
  - Pruritus [Unknown]
  - Pulmonary mass [Unknown]
